FAERS Safety Report 9913580 (Version 1)
Quarter: 2014Q1

REPORT INFORMATION
  Report Type: Spontaneous
  Country: TR (occurrence: TR)
  Receive Date: 20140220
  Receipt Date: 20140220
  Transmission Date: 20141002
  Serious: Yes (Hospitalization)
  Sender: FDA-Public Use
  Company Number: TR-SA-2014SA016762

PATIENT
  Sex: Male
  Weight: 100 kg

DRUGS (9)
  1. PLAVIX [Suspect]
     Indication: CORONARY ARTERY DISEASE
     Route: 048
  2. CORASPIN [Suspect]
     Indication: CORONARY ARTERY DISEASE
     Route: 065
  3. ATORVASTATIN CALCIUM [Concomitant]
  4. DELIX [Concomitant]
  5. ORAL ANTIDIABETICS [Concomitant]
     Indication: DIABETES MELLITUS
  6. CALCIUM CHANNEL BLOCKERS [Concomitant]
     Indication: HYPERTENSION
  7. BETA BLOCKING AGENTS [Concomitant]
     Indication: CARDIAC FAILURE
  8. DIGOXIN [Concomitant]
     Indication: ATRIAL FIBRILLATION
  9. NEBIVOLOL HYDROCHLORIDE [Concomitant]
     Indication: ATRIAL FIBRILLATION

REACTIONS (1)
  - Arrhythmia [Unknown]
